FAERS Safety Report 15074037 (Version 1)
Quarter: 2018Q2

REPORT INFORMATION
  Report Type: Spontaneous
  Country: US (occurrence: US)
  Receive Date: 20180627
  Receipt Date: 20180627
  Transmission Date: 20180711
  Serious: No
  Sender: FDA-Public Use
  Company Number: US-SUN PHARMACEUTICAL INDUSTRIES LTD-2017US-151176

PATIENT

DRUGS (2)
  1. TAXOTERE [Suspect]
     Active Substance: DOCETAXEL
     Indication: PRODUCT USED FOR UNKNOWN INDICATION
     Dosage: UNK
     Route: 065
     Dates: start: 20131226, end: 20140227
  2. DOCETAXEL. [Suspect]
     Active Substance: DOCETAXEL
     Indication: PRODUCT USED FOR UNKNOWN INDICATION
     Dosage: UNK
     Route: 065
     Dates: start: 20131226, end: 20140227

REACTIONS (7)
  - Anxiety [Unknown]
  - Discomfort [Unknown]
  - Pain [Unknown]
  - Impaired quality of life [Unknown]
  - Deformity [Not Recovered/Not Resolved]
  - Emotional distress [Unknown]
  - Alopecia [Not Recovered/Not Resolved]
